FAERS Safety Report 13468461 (Version 2)
Quarter: 2017Q2

REPORT INFORMATION
  Report Type: Spontaneous
  Country: DE (occurrence: DE)
  Receive Date: 20170421
  Receipt Date: 20170601
  Transmission Date: 20170830
  Serious: Yes (Other)
  Sender: FDA-Public Use
  Company Number: DE-TEVA-734293GER

PATIENT
  Age: 70 Year
  Sex: Female
  Weight: 79 kg

DRUGS (12)
  1. TOLTERODIN-RATIOPHARM 4 MG RETARDKAPSELN [Suspect]
     Active Substance: TOLTERODINE TARTRATE
     Indication: URGE INCONTINENCE
     Dosage: 4 MILLIGRAM DAILY;
     Route: 048
     Dates: start: 20161201, end: 20170103
  2. METFORMIN [Concomitant]
     Active Substance: METFORMIN HYDROCHLORIDE
  3. DINITROGLYCERIN [Concomitant]
  4. ASS 100 [Concomitant]
     Active Substance: ASPIRIN
  5. ALLOPURINOL. [Concomitant]
     Active Substance: ALLOPURINOL
  6. LANTUS [Concomitant]
     Active Substance: INSULIN GLARGINE
  7. THYRONA IOD [Concomitant]
  8. SIMVASTATIN. [Concomitant]
     Active Substance: SIMVASTATIN
  9. BELOC ZOK [Concomitant]
     Active Substance: METOPROLOL SUCCINATE
  10. ABITRA [Concomitant]
  11. PANTOPRAZOL [Concomitant]
     Active Substance: PANTOPRAZOLE SODIUM
  12. SPIRONOLACTON [Concomitant]
     Active Substance: SPIRONOLACTONE

REACTIONS (16)
  - Swelling face [Recovered/Resolved]
  - Dry mouth [Recovered/Resolved]
  - Swollen tongue [Recovered/Resolved]
  - Cardiac failure [Recovered/Resolved]
  - Dysphagia [Not Recovered/Not Resolved]
  - Oedema [Recovered/Resolved]
  - Pharyngeal oedema [Recovered/Resolved]
  - Palpitations [Recovered/Resolved]
  - Dysgeusia [Not Recovered/Not Resolved]
  - Drug intolerance [Recovered/Resolved]
  - Oral mucosal blistering [Not Recovered/Not Resolved]
  - Speech disorder [Recovered/Resolved]
  - Vision blurred [Recovered/Resolved]
  - Stomatitis [Not Recovered/Not Resolved]
  - Renal failure [Recovered/Resolved]
  - Coronary artery disease [Recovered/Resolved]

NARRATIVE: CASE EVENT DATE: 20140228
